FAERS Safety Report 8982475 (Version 1)
Quarter: 2012Q4

REPORT INFORMATION
  Report Type: 
  Country: US (occurrence: US)
  Receive Date: 20121222
  Receipt Date: 20121222
  Transmission Date: 20130627
  Serious: No
  Sender: FDA-Public Use
  Company Number: US-ASTRAZENECA-2012SE88138

PATIENT
  Age: 58 Year
  Sex: Female
  Weight: 77.1 kg

DRUGS (4)
  1. PULMICORT FLEXHALER [Suspect]
     Indication: ASTHMA
     Route: 055
     Dates: start: 20120917, end: 20121005
  2. PULMICORT FLEXHALER [Suspect]
     Indication: ASTHMA
     Route: 055
     Dates: start: 20121108
  3. SYMBICORT PMDI [Suspect]
     Indication: ASTHMA
     Dosage: UNKNOWN FREQUENCY
     Route: 055
  4. KLONOZAPAM [Concomitant]

REACTIONS (5)
  - Urinary tract pain [Unknown]
  - Pollakiuria [Unknown]
  - Palpitations [Unknown]
  - Drug ineffective [Unknown]
  - Off label use [Unknown]
